FAERS Safety Report 5920814-6 (Version None)
Quarter: 2008Q4

REPORT INFORMATION
  Report Type: 
  Country: None (occurrence: None)
  Receive Date: 20081016
  Receipt Date: 20081009
  Transmission Date: 20090506
  Serious: Yes (Hospitalization)
  Sender: FDA-Public Use
  Company Number: BR-ABBOTT-08P-020-0477811-00

PATIENT
  Sex: Female
  Weight: 57 kg

DRUGS (9)
  1. HUMIRA [Suspect]
     Indication: RHEUMATOID ARTHRITIS
     Dosage: ONE APPLICATION EVERY 14 DAYS
     Route: 058
     Dates: start: 20050101
  2. HUMIRA [Suspect]
  3. LEFLUNOMIDE [Concomitant]
     Indication: RHEUMATOID ARTHRITIS
     Route: 048
     Dates: start: 20080101
  4. METHOTREXATE [Concomitant]
     Indication: RHEUMATOID ARTHRITIS
     Route: 048
     Dates: end: 20070101
  5. IODOTHERAPY [Concomitant]
     Indication: GOITRE
     Dates: start: 20060101, end: 20060101
  6. IODOTHERAPY [Concomitant]
  7. METHIMAZOLE [Concomitant]
     Indication: HYPOTHYROIDISM
     Route: 048
     Dates: end: 20070101
  8. LEVOTHYROXINE SODIUM [Concomitant]
     Indication: HYPOTHYROIDISM
     Route: 048
     Dates: start: 20070101
  9. UNKNOWN MEDICATION [Concomitant]
     Indication: RHEUMATOID ARTHRITIS

REACTIONS (2)
  - BONE EROSION [None]
  - SPINAL DISORDER [None]
